FAERS Safety Report 6742423-1 (Version None)
Quarter: 2010Q2

REPORT INFORMATION
  Report Type: 
  Country: None (occurrence: None)
  Receive Date: 20100526
  Receipt Date: 20051021
  Transmission Date: 20101027
  Serious: Yes (Other)
  Sender: FDA-Public Use
  Company Number: PHHY2005MX02165

PATIENT
  Age: 66 Year
  Sex: Female

DRUGS (1)
  1. DIOVAN HCT [Suspect]
     Indication: HYPERTENSION
     Dosage: UNK, (160/12.5 MG), OD
     Dates: start: 20050401, end: 20051003

REACTIONS (2)
  - FEAR [None]
  - SOMNOLENCE [None]
